FAERS Safety Report 4560026-4 (Version None)
Quarter: 2005Q1

REPORT INFORMATION
  Report Type: 
  Country: None (occurrence: None)
  Receive Date: 20050125
  Receipt Date: 20050113
  Transmission Date: 20050727
  Serious: Yes (Other)
  Sender: FDA-Public Use
  Company Number: US-JNJFOC-20050103403

PATIENT
  Sex: Female

DRUGS (13)
  1. INFLIXIMAB [Suspect]
     Indication: RHEUMATOID ARTHRITIS
     Route: 042
  2. METHOTREXATE [Concomitant]
  3. KETOPROFEN [Concomitant]
  4. ESTRATEST [Concomitant]
  5. ESTRATEST [Concomitant]
  6. FOLIC ACID [Concomitant]
  7. PREDNISONE [Concomitant]
  8. VERALAN PM [Concomitant]
  9. FUROSEMIDE [Concomitant]
  10. KLOR-CON [Concomitant]
  11. CYANOCOBALAMIN [Concomitant]
  12. FLONASE [Concomitant]
  13. VAGIFEM [Concomitant]

REACTIONS (1)
  - SQUAMOUS CELL CARCINOMA [None]
